FAERS Safety Report 8608744-2 (Version None)
Quarter: 2012Q2

REPORT INFORMATION
  Report Type: 
  Country: None (occurrence: None)
  Receive Date: 20120423
  Receipt Date: 20091006
  Transmission Date: 20120825
  Serious: Yes (Other)
  Sender: FDA-Public Use
  Company Number: PHEH2009US11794

PATIENT
  Sex: Female

DRUGS (12)
  1. EXJADE [Suspect]
     Indication: IRON OVERLOAD
     Dosage: 750 MG, QD, ORAL
     Route: 048
     Dates: start: 20090804, end: 20090916
  2. PEPCID [Concomitant]
  3. ACTIGALL [Concomitant]
  4. PREDNISONE TAB [Concomitant]
  5. BACTRAM (SULFAMETHOXAZOLE, TRIMETHOPRIM) [Concomitant]
  6. PROZAC [Concomitant]
  7. FOLATE SODIUM (FOLATE SODIUM) [Concomitant]
  8. ACYCLOVIR [Concomitant]
  9. TACROLIMUS [Concomitant]
  10. DOXEPIN HCL [Concomitant]
  11. MAGNESIUM HYDROXIDE TAB [Concomitant]
  12. MULTIVITAMINS (ASCORBIC ACID, ERGOCALCIFEROL, FOLIC ACID, NICOTINAMIDE [Concomitant]

REACTIONS (3)
  - ASPARTATE AMINOTRANSFERASE INCREASED [None]
  - BLOOD BILIRUBIN INCREASED [None]
  - ALANINE AMINOTRANSFERASE INCREASED [None]
